FAERS Safety Report 9632158 (Version 1)
Quarter: 2013Q4

REPORT INFORMATION
  Report Type: Spontaneous
  Country: US (occurrence: None)
  Receive Date: 20131017
  Receipt Date: 20131017
  Transmission Date: 20140711
  Serious: No
  Sender: FDA-Public Use
  Company Number: None

PATIENT
  Age: 81 Year
  Sex: Male

DRUGS (1)
  1. XTANDI 40MG [Suspect]
     Indication: PROSTATE CANCER
     Route: 048
     Dates: start: 20130730, end: 20131010

REACTIONS (4)
  - Fatigue [None]
  - Muscular weakness [None]
  - Diarrhoea [None]
  - Drug ineffective [None]
